FAERS Safety Report 9114149 (Version 1)
Quarter: 2013Q1

REPORT INFORMATION
  Report Type: Spontaneous
  Country: GB (occurrence: GB)
  Receive Date: 20130208
  Receipt Date: 20130208
  Transmission Date: 20140127
  Serious: Yes (Other)
  Sender: FDA-Public Use
  Company Number: PHFR2013GB000734

PATIENT
  Age: 29 Year
  Sex: Male

DRUGS (8)
  1. CLOZARIL [Suspect]
     Indication: SCHIZOPHRENIA
     Dosage: UNK
     Route: 048
     Dates: start: 20110424
  2. CLOZARIL [Suspect]
     Dosage: 750 MG
     Dates: start: 20111106
  3. AMISULPRIDE [Concomitant]
     Indication: SCHIZOPHRENIA
     Dosage: 400 MG, BID
     Route: 048
     Dates: start: 20111118
  4. SENNA [Concomitant]
     Indication: CONSTIPATION
     Dosage: 15 MG
     Route: 048
     Dates: start: 20111116
  5. ATROPIN [Concomitant]
     Indication: SALIVARY HYPERSECRETION
     Dosage: 1 DROP
     Route: 061
     Dates: start: 20111216
  6. ATROPIN [Concomitant]
     Dosage: 2 DROPS
     Dates: start: 20111125
  7. OMEPRAZOLE [Concomitant]
     Indication: DYSPEPSIA
     Dosage: 20 MG
     Route: 048
     Dates: start: 20111116
  8. DOCUSATE SODIUM [Concomitant]
     Indication: CONSTIPATION
     Dosage: 200 MG, BID
     Route: 048

REACTIONS (5)
  - Brain injury [Unknown]
  - Grand mal convulsion [Recovered/Resolved]
  - Tongue biting [Unknown]
  - Schizophrenia, paranoid type [Unknown]
  - Antipsychotic drug level increased [Unknown]
